FAERS Safety Report 10533958 (Version 2)
Quarter: 2015Q1

REPORT INFORMATION
  Report Type: Spontaneous
  Country: DK (occurrence: FR)
  Receive Date: 20141022
  Receipt Date: 20150129
  Transmission Date: 20150720
  Serious: Yes (Death)
  Sender: FDA-Public Use
  Company Number: FR-FRI-1000071671

PATIENT
  Age: 88 Year
  Sex: Male

DRUGS (5)
  1. BI TILDIEM [Concomitant]
     Active Substance: DILTIAZEM HYDROCHLORIDE
     Dosage: 2 DOSAGE FORMS
  2. PARACETAMOL [Concomitant]
     Active Substance: ACETAMINOPHEN
  3. PREVISCAN [Interacting]
     Active Substance: FLUINDIONE
     Indication: ATRIAL FIBRILLATION
     Route: 048
     Dates: start: 2009, end: 20140311
  4. UVEDOSE [Concomitant]
     Active Substance: CHOLECALCIFEROL
     Route: 048
  5. ESCITALOPRAM [Suspect]
     Active Substance: ESCITALOPRAM OXALATE
     Dosage: 5 MG
     Route: 048
     Dates: end: 20140311

REACTIONS (2)
  - Drug interaction [Fatal]
  - Peritoneal haematoma [Fatal]

NARRATIVE: CASE EVENT DATE: 20140311
